FAERS Safety Report 17699803 (Version 6)
Quarter: 2020Q2

REPORT INFORMATION
  Report Type: Spontaneous
  Country: GB (occurrence: GB)
  Receive Date: 20200423
  Receipt Date: 20200601
  Transmission Date: 20200714
  Serious: Yes (Hospitalization, Other)
  Sender: FDA-Public Use
  Company Number: GB-MYLANLABS-2020M1040479

PATIENT
  Age: 58 Year
  Sex: Female

DRUGS (2)
  1. CLOZARIL [Suspect]
     Active Substance: CLOZAPINE
     Dosage: UNK
     Route: 048
     Dates: start: 20200407, end: 20200507
  2. CLOZARIL [Suspect]
     Active Substance: CLOZAPINE
     Indication: SCHIZOPHRENIA
     Dosage: UNK
     Route: 048
     Dates: start: 20191126

REACTIONS (8)
  - Red blood cell count decreased [Not Recovered/Not Resolved]
  - Lymphocyte count increased [Recovered/Resolved]
  - Neutropenia [Recovered/Resolved]
  - Haemoglobin decreased [Recovering/Resolving]
  - Mean cell haemoglobin concentration decreased [Recovered/Resolved]
  - SARS-CoV-2 test positive [Recovered/Resolved]
  - Product dose omission [Unknown]
  - Red cell distribution width increased [Not Recovered/Not Resolved]

NARRATIVE: CASE EVENT DATE: 20200507
